FAERS Safety Report 5871672-X (Version None)
Quarter: 2008Q3

REPORT INFORMATION
  Report Type: 
  Country: None (occurrence: None)
  Receive Date: 20080905
  Receipt Date: 20080822
  Transmission Date: 20090109
  Serious: Yes (Hospitalization)
  Sender: FDA-Public Use
  Company Number: BR-ELI_LILLY_AND_COMPANY-BR200808004856

PATIENT
  Sex: Female
  Weight: 55 kg

DRUGS (11)
  1. FORTEO [Suspect]
     Indication: OSTEOPOROSIS
     Dosage: 20 UG, UNKNOWN
     Route: 058
     Dates: start: 20070501
  2. CLORANA [Concomitant]
     Indication: HYPERTENSION
     Dosage: 25 MG, DAILY (1/D)
     Route: 065
  3. VASOPRIL /BRA/ [Concomitant]
     Indication: HYPERTENSION
     Dosage: 5 MG, 2/D
     Route: 065
  4. SIMVASTATIN [Concomitant]
     Indication: BLOOD CHOLESTEROL INCREASED
     Dosage: 20 MG, DAILY (1/D)
     Route: 065
  5. LASIX [Concomitant]
     Indication: POOR PERIPHERAL CIRCULATION
     Dosage: 75 MG, DAILY (1/D)
     Route: 065
  6. VASOCARD [Concomitant]
     Indication: POOR PERIPHERAL CIRCULATION
     Dosage: 50 MG, 2/D
     Route: 065
  7. CAL-500-D [Concomitant]
     Indication: OSTEOPOROSIS
     Dosage: UNK, DAILY (1/D)
     Route: 065
  8. METAMUCIL [Concomitant]
     Indication: INTESTINAL FUNCTIONAL DISORDER
     Dosage: UNK, 2/D
     Route: 065
  9. NASONEX [Concomitant]
     Indication: RESPIRATION ABNORMAL
     Dosage: UNK, DAILY (1/D)
     Route: 045
  10. SODIUM CHLORIDE 0.9% [Concomitant]
     Indication: RESPIRATION ABNORMAL
     Dosage: UNK, DAILY (1/D)
     Route: 045
  11. ARTIFICIAL TEARS [Concomitant]
     Indication: DRY EYE
     Dosage: UNK, UNKNOWN
     Route: 047

REACTIONS (2)
  - CARDIAC DISORDER [None]
  - DEFICIENCY ANAEMIA [None]
